FAERS Safety Report 6450402-7 (Version None)
Quarter: 2009Q4

REPORT INFORMATION
  Report Type: 
  Country: None (occurrence: None)
  Receive Date: 20091123
  Receipt Date: 20091113
  Transmission Date: 20100525
  Serious: Yes (Other)
  Sender: FDA-Public Use
  Company Number: BR-ASTRAZENECA-2009SE26566

PATIENT
  Age: 55 Year
  Sex: Female
  Weight: 87 kg

DRUGS (6)
  1. ARIMIDEX [Suspect]
     Indication: BREAST CANCER
     Dosage: DAILY
     Route: 048
     Dates: start: 20090901
  2. OMEPRAZOLE [Suspect]
     Indication: GASTRITIS
     Route: 048
     Dates: start: 20060101
  3. TAMOXIFEN CITRATE [Suspect]
     Indication: BREAST CANCER
     Dosage: DAILY
     Route: 048
     Dates: start: 20090101, end: 20090101
  4. FLUOXETINE [Concomitant]
     Indication: PANIC DISORDER
     Route: 048
     Dates: start: 20040101
  5. PURAN T4 [Concomitant]
     Indication: HYPOTHYROIDISM
     Route: 048
     Dates: start: 20010101
  6. ALPRAZOLAM [Concomitant]
     Indication: PANIC DISORDER
     Route: 048
     Dates: start: 20060101

REACTIONS (11)
  - BREAST CANCER [None]
  - DYSPHONIA [None]
  - GAIT DISTURBANCE [None]
  - HAEMORRHAGE [None]
  - LACRIMATION INCREASED [None]
  - MOUTH ULCERATION [None]
  - OEDEMA PERIPHERAL [None]
  - PAIN IN EXTREMITY [None]
  - RASH [None]
  - RHINITIS [None]
  - TRIGGER FINGER [None]
